FAERS Safety Report 10485274 (Version 3)
Quarter: 2014Q4

REPORT INFORMATION
  Report Type: Spontaneous
  Country: JP (occurrence: JP)
  Receive Date: 20140930
  Receipt Date: 20141022
  Transmission Date: 20150528
  Serious: Yes (Hospitalization, Other)
  Sender: FDA-Public Use
  Company Number: JP-PFIZER INC-2014265215

PATIENT
  Age: 31 Year
  Sex: Female
  Weight: 40 kg

DRUGS (6)
  1. UNASYN [Suspect]
     Active Substance: AMPICILLIN SODIUM\SULBACTAM SODIUM
     Indication: PARONYCHIA
     Dosage: 3 G, 2X/DAY
     Route: 041
     Dates: start: 20140919, end: 20140921
  2. KEFRAL [Concomitant]
     Active Substance: CEFACLOR
     Indication: PARONYCHIA
     Dosage: 250 MG, 3X/DAY
     Route: 048
     Dates: start: 20140908, end: 20140919
  3. CEFAMEZIN ALPHA [Suspect]
     Active Substance: CEFAZOLIN SODIUM
     Indication: PARONYCHIA
     Dosage: 1 G, 2X/DAY
     Route: 041
     Dates: start: 20140922, end: 20140923
  4. PLANOVAR [Concomitant]
     Active Substance: ETHINYL ESTRADIOL\NORGESTREL
     Dosage: 1 DF, 1X/DAY
     Route: 048
  5. NEOPHAGEN /00467204/ [Suspect]
     Active Substance: CYSTEINE\GLYCINE\GLYCYRRHIZIN
     Indication: DRUG ERUPTION
     Dosage: 20 ML, 1X/DAY
     Route: 017
     Dates: start: 20140924, end: 20140924
  6. SOLU-CORTEF [Suspect]
     Active Substance: HYDROCORTISONE SODIUM SUCCINATE
     Indication: DRUG ERUPTION
     Dosage: 100 MG, DAILY
     Route: 041
     Dates: start: 20140924, end: 20140924

REACTIONS (2)
  - Rash [Recovering/Resolving]
  - Anaphylactic reaction [Recovered/Resolved]

NARRATIVE: CASE EVENT DATE: 20140921
